FAERS Safety Report 7184555-2 (Version None)
Quarter: 2010Q4

REPORT INFORMATION
  Report Type: 
  Country: None (occurrence: None)
  Receive Date: 20101222
  Receipt Date: 20101210
  Transmission Date: 20110411
  Serious: Yes (Hospitalization)
  Sender: FDA-Public Use
  Company Number: DE-ELI_LILLY_AND_COMPANY-DE201012002483

PATIENT
  Sex: Female

DRUGS (6)
  1. BYETTA [Suspect]
     Indication: DIABETES MELLITUS
     Dosage: 5 UG, UNKNOWN
     Route: 058
     Dates: start: 20101101, end: 20101101
  2. DOXAZOSIN [Concomitant]
  3. HCT [Concomitant]
     Dosage: 12.5 MG, DAILY (1/D)
  4. FLUVASTATIN [Concomitant]
     Dosage: 20 MG, DAILY (1/D)
  5. LISINOPRIL [Concomitant]
     Dosage: UNK, 2/D
  6. MOXONIDIN [Concomitant]
     Dosage: 3 MG, DAILY (1/D)

REACTIONS (5)
  - ABDOMINAL PAIN UPPER [None]
  - BLOOD GLUCOSE INCREASED [None]
  - NAUSEA [None]
  - URINARY TRACT INFECTION [None]
  - VOMITING [None]
